FAERS Safety Report 20706466 (Version 6)
Quarter: 2025Q4

REPORT INFORMATION
  Report Type: Report from Study
  Country: US (occurrence: US)
  Receive Date: 20220413
  Receipt Date: 20251221
  Transmission Date: 20260118
  Serious: Yes (Other)
  Sender: PFIZER
  Company Number: US-PFIZER INC-202200512698

PATIENT
  Age: 73 Year
  Sex: Female

DRUGS (1)
  1. IBRANCE [Suspect]
     Active Substance: PALBOCICLIB
     Indication: Breast cancer recurrent
     Dosage: 75 MG, CYCLIC (ON DAYS 1-21 FOLLOWED BY 7 DAYS OFF EVERY 28 DAYS)
     Route: 048

REACTIONS (1)
  - Neutropenia [Unknown]
